FAERS Safety Report 24797093 (Version 1)
Quarter: 2025Q1

REPORT INFORMATION
  Report Type: Spontaneous
  Country: US (occurrence: US)
  Receive Date: 20250101
  Receipt Date: 20250101
  Transmission Date: 20250408
  Serious: No
  Sender: ALKERMES
  Company Number: US-ALKERMES INC.-ALK-2024-003268

PATIENT
  Age: 24 Year
  Sex: Male

DRUGS (1)
  1. VIVITROL [Suspect]
     Active Substance: NALTREXONE
     Indication: Product used for unknown indication
     Route: 030

REACTIONS (1)
  - Intentional dose omission [Not Recovered/Not Resolved]

NARRATIVE: CASE EVENT DATE: 20241219
